FAERS Safety Report 9351471 (Version 2)
Quarter: 2013Q3

REPORT INFORMATION
  Report Type: Spontaneous
  Country: US (occurrence: US)
  Receive Date: 20130617
  Receipt Date: 20130718
  Transmission Date: 20140515
  Serious: Yes (Death, Hospitalization)
  Sender: FDA-Public Use
  Company Number: US-B.I. PHARMACEUTICALS,INC./RIDGEFIELD-2013-BI-16977BP

PATIENT
  Age: 70 Year
  Sex: Male
  Weight: 80.5 kg

DRUGS (1)
  1. PRADAXA [Suspect]
     Indication: ATRIAL FLUTTER
     Dosage: 300 MG
     Route: 048
     Dates: start: 20130425, end: 20130515

REACTIONS (3)
  - Intestinal ischaemia [Fatal]
  - Abdominal pain [Fatal]
  - Nausea [Fatal]
